FAERS Safety Report 4955369-6 (Version None)
Quarter: 2006Q1

REPORT INFORMATION
  Report Type: 
  Country: None (occurrence: None)
  Receive Date: 20060328
  Receipt Date: 20060317
  Transmission Date: 20060701
  Serious: Yes (Other)
  Sender: FDA-Public Use
  Company Number: 2006SE01577

PATIENT
  Age: 18392 Day
  Sex: Male

DRUGS (3)
  1. BLOPRESS TABLETS 4 [Suspect]
     Route: 048
     Dates: start: 20060315, end: 20060315
  2. AMLODIPINE BESYLATE [Suspect]
     Route: 048
     Dates: start: 20060315, end: 20060315
  3. ANTIPSYCHOTICS [Suspect]
     Route: 048
     Dates: start: 20060315, end: 20060315

REACTIONS (2)
  - BLOOD PRESSURE DECREASED [None]
  - OVERDOSE [None]
